FAERS Safety Report 9317780 (Version 1)
Quarter: 2013Q2

REPORT INFORMATION
  Report Type: Spontaneous
  Country: US (occurrence: None)
  Receive Date: 20130523
  Receipt Date: 20130523
  Transmission Date: 20140414
  Serious: Yes (Hospitalization)
  Sender: FDA-Public Use
  Company Number: 2013-RU-0001

PATIENT
  Age: 58 Year
  Sex: Female

DRUGS (1)
  1. FARESTON [Suspect]
     Indication: PRODUCT USED FOR UNKNOWN INDICATION
     Route: 048

REACTIONS (3)
  - Face oedema [None]
  - Pruritus [None]
  - Rash [None]
